FAERS Safety Report 4268569-8 (Version None)
Quarter: 2004Q1

REPORT INFORMATION
  Report Type: 
  Country: None (occurrence: None)
  Receive Date: 20040112
  Receipt Date: 20031209
  Transmission Date: 20041129
  Serious: Yes (Hospitalization)
  Sender: FDA-Public Use
  Company Number: PHRM2003FR03307

PATIENT
  Age: 43 Year
  Sex: Female
  Weight: 55 kg

DRUGS (3)
  1. TRILEPTAL [Suspect]
     Indication: BIPOLAR I DISORDER
     Dosage: 600 MG, BID
     Route: 048
     Dates: start: 20031105, end: 20031201
  2. SOLIAN [Concomitant]
     Indication: BIPOLAR I DISORDER
     Dosage: 400 MG DAILY
     Route: 048
     Dates: start: 20031104, end: 20031201
  3. INSULIN [Concomitant]
     Indication: DIABETES MELLITUS INSULIN-DEPENDENT

REACTIONS (5)
  - BLOOD ALKALINE PHOSPHATASE INCREASED [None]
  - HEPATITIS [None]
  - HYPONATRAEMIA [None]
  - INFLUENZA LIKE ILLNESS [None]
  - PYREXIA [None]
